FAERS Safety Report 13565459 (Version 1)
Quarter: 2017Q2

REPORT INFORMATION
  Report Type: Spontaneous
  Country: CA (occurrence: CA)
  Receive Date: 20170519
  Receipt Date: 20170519
  Transmission Date: 20170830
  Serious: Yes (Hospitalization)
  Sender: FDA-Public Use
  Company Number: CA-SA-2015SA190116

PATIENT
  Age: 72 Year
  Sex: Female

DRUGS (14)
  1. ACEBUTOLOL HYDROCHLORIDE. [Suspect]
     Active Substance: ACEBUTOLOL HYDROCHLORIDE
     Indication: CHRONIC KIDNEY DISEASE
     Route: 065
  2. NOVOLIN [Suspect]
     Active Substance: INSULIN HUMAN
     Indication: DIABETES MELLITUS
     Dosage: 0-0-0-9 (UNITS).
     Route: 030
  3. RAMIPRIL. [Suspect]
     Active Substance: RAMIPRIL
     Indication: HYPERTENSION
     Route: 065
  4. RAMIPRIL. [Suspect]
     Active Substance: RAMIPRIL
     Indication: HYPERTENSION
     Route: 065
  5. AMLODIPINE BESILATE [Suspect]
     Active Substance: AMLODIPINE BESYLATE
     Indication: HYPERTENSION
     Route: 065
  6. CLONIDINE. [Suspect]
     Active Substance: CLONIDINE
     Indication: HYPERTENSION
     Route: 065
  7. HUMULIN 70/30 [Suspect]
     Active Substance: INSULIN HUMAN
     Dosage: FORM- SUSPENSION DOSE:84 UNIT(S)
     Route: 058
  8. NOVORAPID [Suspect]
     Active Substance: INSULIN ASPART
     Indication: DIABETES MELLITUS
     Dosage: 17-17-17 DOSE:17 UNIT(S)
     Route: 065
  9. NOVOLIN [Suspect]
     Active Substance: INSULIN HUMAN
     Indication: DIABETES MELLITUS
     Dosage: FORM: SOLUTION?DOSE:48 -0-36 UNITS
     Route: 030
  10. INDAPAMIDE. [Suspect]
     Active Substance: INDAPAMIDE
     Indication: HYPERTENSION
     Route: 065
  11. ASPIRIN. [Suspect]
     Active Substance: ASPIRIN
     Indication: MYOCARDIAL ISCHAEMIA
     Route: 065
  12. ACETAMINOPHEN. [Suspect]
     Active Substance: ACETAMINOPHEN
     Indication: PAIN
     Dosage: 4-6H AS NEEDED
     Route: 065
  13. ASPIRIN. [Suspect]
     Active Substance: ASPIRIN
     Indication: MYOCARDIAL ISCHAEMIA
     Route: 065
  14. ROSUVASTATIN. [Suspect]
     Active Substance: ROSUVASTATIN
     Indication: DYSLIPIDAEMIA
     Route: 065

REACTIONS (11)
  - Fall [Unknown]
  - Atrial fibrillation [Recovering/Resolving]
  - Hypotension [Recovering/Resolving]
  - Blood creatine phosphokinase increased [Recovered/Resolved]
  - Apathy [Recovering/Resolving]
  - Urinary tract infection [Recovering/Resolving]
  - Asthenia [Recovering/Resolving]
  - Cognitive disorder [Recovering/Resolving]
  - Hypoglycaemia [Recovering/Resolving]
  - Disorientation [Recovering/Resolving]
  - Muscular weakness [Recovering/Resolving]
